FAERS Safety Report 6135711-3 (Version None)
Quarter: 2009Q1

REPORT INFORMATION
  Report Type: 
  Country: None (occurrence: None)
  Receive Date: 20090327
  Receipt Date: 20090319
  Transmission Date: 20090719
  Serious: Yes (Other)
  Sender: FDA-Public Use
  Company Number: US-AMGEN-QUU316655

PATIENT
  Sex: Male
  Weight: 95.3 kg

DRUGS (7)
  1. NEULASTA [Suspect]
     Indication: CHEMOTHERAPY
     Route: 065
  2. NEUPOGEN [Suspect]
     Indication: CHEMOTHERAPY
     Dates: start: 20080814, end: 20081127
  3. TAXOTERE [Concomitant]
     Route: 065
     Dates: start: 20080813, end: 20081126
  4. SIMVASTATIN [Concomitant]
     Dates: start: 20080101
  5. DETROL [Concomitant]
     Dates: start: 20060101
  6. LEVOXYL [Concomitant]
     Dates: start: 20080101
  7. LUPRON [Concomitant]
     Dates: start: 20081001

REACTIONS (2)
  - IRITIS [None]
  - MACULAR DEGENERATION [None]
